FAERS Safety Report 5336860-X (Version None)
Quarter: 2007Q2

REPORT INFORMATION
  Report Type: 
  Country: None (occurrence: None)
  Receive Date: 20070524
  Receipt Date: 20070524
  Transmission Date: 20071010
  Serious: Yes (Hospitalization)
  Sender: FDA-Public Use
  Company Number: None

PATIENT
  Age: 79 Year
  Sex: Female
  Weight: 56.6996 kg

DRUGS (1)
  1. RYTHMOL [Suspect]
     Indication: ARRHYTHMIA
     Dosage: 1 TABLET TWICE A DAY PO
     Route: 048
     Dates: start: 20070505, end: 20070516

REACTIONS (4)
  - DYSSTASIA [None]
  - FALL [None]
  - FATIGUE [None]
  - TREMOR [None]
